FAERS Safety Report 24445894 (Version 1)
Quarter: 2024Q4

REPORT INFORMATION
  Report Type: Spontaneous
  Country: US (occurrence: US)
  Receive Date: 20241016
  Receipt Date: 20241016
  Transmission Date: 20250115
  Serious: No
  Sender: Unknown Manufacturer
  Company Number: US-SHIELD THERAPEUTICS-US-STX-24-00149

PATIENT
  Age: 88 Year
  Sex: Female

DRUGS (1)
  1. ACCRUFER [Suspect]
     Active Substance: FERRIC MALTOL
     Indication: Iron deficiency anaemia
     Dosage: 30 MILLIGRAM, BID, 1 HOUR BEFORE OR 2 HOURS AFTER MEALS
     Route: 048
     Dates: start: 20240601, end: 20240620

REACTIONS (1)
  - Abdominal discomfort [Recovering/Resolving]
